FAERS Safety Report 5627168-3 (Version None)
Quarter: 2008Q1

REPORT INFORMATION
  Report Type: 
  Country: None (occurrence: None)
  Receive Date: 20080212
  Receipt Date: 20080212
  Transmission Date: 20080703
  Serious: Yes (Death, Hospitalization)
  Sender: FDA-Public Use
  Company Number: None

PATIENT
  Sex: Female
  Weight: 9.4 kg

DRUGS (18)
  1. DOXORUBICIN HYDROCHLORIDE [Suspect]
     Dosage: 34.5 MG
  2. VINCRISTINE SULFATE [Suspect]
     Dosage: 1.5 MG
  3. CYCLOPHOSPHAMIDE [Suspect]
     Dosage: 500 MG
  4. ACETAMINOPHEN [Concomitant]
  5. FLAGYL [Concomitant]
  6. FLUCONAZOLE [Concomitant]
  7. FLUTICAZOLE [Concomitant]
  8. NEUPOGEN [Concomitant]
  9. GRAVOL TAB [Concomitant]
  10. LOVENOX [Concomitant]
  11. MESNA [Concomitant]
  12. MORPHINE [Concomitant]
  13. ONDANSETRON [Concomitant]
  14. PIPERACILLIN AND TAZOBACTAM [Concomitant]
  15. SEPTRA [Concomitant]
  16. TOBRAMYCIN [Concomitant]
  17. TYLENOL (CAPLET) [Concomitant]
  18. URSODIOL [Concomitant]

REACTIONS (9)
  - CARDIAC FAILURE ACUTE [None]
  - CARDIOMEGALY [None]
  - CONVULSION [None]
  - CYANOSIS [None]
  - HEPATOMEGALY [None]
  - LETHARGY [None]
  - LIVER FUNCTION TEST ABNORMAL [None]
  - OXYGEN SATURATION DECREASED [None]
  - VENOUS PRESSURE JUGULAR INCREASED [None]
